FAERS Safety Report 15232382 (Version 1)
Quarter: 2018Q3

REPORT INFORMATION
  Report Type: Spontaneous
  Country: US (occurrence: US)
  Receive Date: 20180709
  Receipt Date: 20180709
  Transmission Date: 20181010
  Serious: Yes (Disabling, Other)
  Sender: FDA-Public Use
  Company Number: None

PATIENT
  Age: 74 Year
  Sex: Male
  Weight: 60.75 kg

DRUGS (24)
  1. LOSARTAN. [Concomitant]
     Active Substance: LOSARTAN
  2. PRAMIPEXOLE. [Concomitant]
     Active Substance: PRAMIPEXOLE
  3. SPIRIVA [Concomitant]
     Active Substance: TIOTROPIUM BROMIDE MONOHYDRATE
  4. DOFETILIDE. [Concomitant]
     Active Substance: DOFETILIDE
  5. AMOXICILLIN. [Concomitant]
     Active Substance: AMOXICILLIN
  6. BREO ELLIPTA [Concomitant]
     Active Substance: FLUTICASONE FUROATE\VILANTEROL TRIFENATATE
  7. LUTEIN [Concomitant]
     Active Substance: LUTEIN
  8. FUROSEMIDE. [Concomitant]
     Active Substance: FUROSEMIDE
  9. PHENYTOIN. [Concomitant]
     Active Substance: PHENYTOIN
  10. MULTI?VITAMIN [Concomitant]
     Active Substance: .ALPHA.-TOCOPHEROL ACETATE, DL-\ASCORBIC ACID\CYANOCOBALAMIN\FLUORIDE ION\FOLIC ACID\NIACIN\PYRIDOXINE\RIBOFLAVIN\THIAMINE\VITAMIN A\VITAMIN D
  11. MELATONIN [Concomitant]
     Active Substance: MELATONIN
  12. METOLAZONE. [Concomitant]
     Active Substance: METOLAZONE
  13. SPIRONOLACTONE. [Concomitant]
     Active Substance: SPIRONOLACTONE
  14. WARFARIN [Concomitant]
     Active Substance: WARFARIN
  15. PROAIR HFA [Concomitant]
     Active Substance: ALBUTEROL SULFATE
  16. COENZYME Q10 [Concomitant]
     Active Substance: UBIDECARENONE
  17. VITAMIN D3 [Concomitant]
     Active Substance: CHOLECALCIFEROL
  18. KLOR?CON [Concomitant]
     Active Substance: POTASSIUM CHLORIDE
  19. CLONAZEPAM. [Suspect]
     Active Substance: CLONAZEPAM
     Indication: INSOMNIA
     Dosage: ?          QUANTITY:180 TABLET(S);?
     Route: 048
     Dates: start: 20130731, end: 20180705
  20. SUMATRIPTAN. [Concomitant]
     Active Substance: SUMATRIPTAN
  21. CARVEDILOL. [Concomitant]
     Active Substance: CARVEDILOL
  22. CLOPIDOGREL BIS [Concomitant]
  23. ATORVASTATIN [Concomitant]
     Active Substance: ATORVASTATIN
  24. ZINC. [Concomitant]
     Active Substance: ZINC

REACTIONS (5)
  - Sudden onset of sleep [None]
  - Aggression [None]
  - Anxiety [None]
  - Fall [None]
  - Insomnia [None]

NARRATIVE: CASE EVENT DATE: 20180705
